FAERS Safety Report 16838829 (Version 2)
Quarter: 2019Q3

REPORT INFORMATION
  Report Type: Report from Study
  Country: GB (occurrence: GB)
  Receive Date: 20190923
  Receipt Date: 20190925
  Transmission Date: 20191005
  Serious: Yes (Hospitalization)
  Sender: FDA-Public Use
  Company Number: PHHY2019GB174334

PATIENT
  Age: 68 Year
  Sex: Male
  Weight: 85 kg

DRUGS (1)
  1. COSENTYX [Suspect]
     Active Substance: SECUKINUMAB
     Indication: ANKYLOSING SPONDYLITIS
     Dosage: 150 MG, QW (LOADING DOSES AT WEEKS 0,1,2,3,4 THEN MONTHLY MAINTENANCE THEREAFTER)
     Route: 058
     Dates: start: 20190724

REACTIONS (4)
  - Taste disorder [Unknown]
  - Hallucination, auditory [Unknown]
  - Blood potassium increased [Not Recovered/Not Resolved]
  - Blood calcium decreased [Not Recovered/Not Resolved]

NARRATIVE: CASE EVENT DATE: 20190724
